FAERS Safety Report 23227424 (Version 1)
Quarter: 2023Q4

REPORT INFORMATION
  Report Type: Spontaneous
  Country: CN (occurrence: CN)
  Receive Date: 20231124
  Receipt Date: 20231124
  Transmission Date: 20240110
  Serious: Yes (Other)
  Sender: FDA-Public Use
  Company Number: CN-009507513-2311CHN007544

PATIENT
  Age: 1 Day
  Sex: Male
  Weight: 1.28 kg

DRUGS (1)
  1. CILASTATIN SODIUM\IMIPENEM [Suspect]
     Active Substance: CILASTATIN SODIUM\IMIPENEM
     Indication: Infection
     Dosage: 25 MG, TID (ALSO REPORTED AS QD, CONFLICT INFORMATION)
     Route: 041
     Dates: start: 20231023, end: 20231027

REACTIONS (2)
  - Neonatal epileptic seizure [Recovering/Resolving]
  - Product administered to patient of inappropriate age [Unknown]

NARRATIVE: CASE EVENT DATE: 20231024
